FAERS Safety Report 4699257-1 (Version None)
Quarter: 2005Q2

REPORT INFORMATION
  Report Type: 
  Country: None (occurrence: None)
  Receive Date: 20050622
  Receipt Date: 20050609
  Transmission Date: 20051028
  Serious: Yes (Hospitalization, Other)
  Sender: FDA-Public Use
  Company Number: 2005087261

PATIENT
  Age: 55 Year
  Sex: Female

DRUGS (1)
  1. CELEBREX [Suspect]
     Indication: SPONDYLITIS
     Dosage: 400 MG (200 MG, 2 IN 1 D)
     Dates: end: 20050523

REACTIONS (2)
  - CARDIAC DISORDER [None]
  - RENAL FAILURE [None]
